FAERS Safety Report 8353441-4 (Version None)
Quarter: 2012Q2

REPORT INFORMATION
  Report Type: 
  Country: None (occurrence: None)
  Receive Date: 20120511
  Receipt Date: 20110309
  Transmission Date: 20120825
  Serious: No
  Sender: FDA-Public Use
  Company Number: US-GLAXOSMITHKLINE-A0918525A

PATIENT
  Age: 46 Year
  Sex: Female

DRUGS (7)
  1. TYKERB [Suspect]
     Indication: BREAST CANCER
     Dosage: 1250MG PER DAY
     Route: 048
     Dates: start: 20110225
  2. HYDROCHLOROTHIAZIDE [Concomitant]
  3. XELODA [Suspect]
     Indication: PRODUCT USED FOR UNKNOWN INDICATION
     Dosage: 1500MG SEE DOSAGE TEXT
     Route: 065
     Dates: start: 20110225
  4. XELODA [Concomitant]
  5. POTASSIUM CHLORIDE [Concomitant]
  6. BLOOD PRESSURE MEDICATION [Concomitant]
  7. XGEVA [Concomitant]

REACTIONS (5)
  - DIARRHOEA [None]
  - BACK PAIN [None]
  - DRY SKIN [None]
  - BLOOD POTASSIUM DECREASED [None]
  - CHAPPED LIPS [None]
